FAERS Safety Report 19493013 (Version 3)
Quarter: 2021Q3

REPORT INFORMATION
  Report Type: Report from Study
  Country: IT (occurrence: IT)
  Receive Date: 20210705
  Receipt Date: 20210713
  Transmission Date: 20211014
  Serious: Yes (Other)
  Sender: FDA-Public Use
  Company Number: IT-PFIZER INC-2021751982

PATIENT
  Age: 81 Year
  Sex: Female

DRUGS (16)
  1. ALPRAZOLAM. [Interacting]
     Active Substance: ALPRAZOLAM
     Dosage: UNK
     Route: 065
  2. HYDROXYCHLOROQUINE [Interacting]
     Active Substance: HYDROXYCHLOROQUINE
     Dosage: 800 MILLIGRAM
     Route: 065
  3. VITAMIN C [Concomitant]
     Active Substance: ASCORBIC ACID
     Dosage: UNK
     Route: 065
  4. FOLIC ACID. [Concomitant]
     Active Substance: FOLIC ACID
     Dosage: UNK
     Route: 065
  5. THIAMAZOLE [Concomitant]
     Active Substance: METHIMAZOLE
     Dosage: UNK
     Route: 065
  6. PANTOPRAZOLE [Suspect]
     Active Substance: PANTOPRAZOLE
     Dosage: UNK
     Route: 065
  7. BISOPROLOL FUMARATE. [Interacting]
     Active Substance: BISOPROLOL FUMARATE
     Dosage: UNK
     Route: 065
  8. WARFARIN [Interacting]
     Active Substance: WARFARIN
     Dosage: UNK
     Route: 065
  9. FUROSEMIDE. [Interacting]
     Active Substance: FUROSEMIDE
     Dosage: UNK
     Route: 065
  10. HYDROXYCHLOROQUINE [Interacting]
     Active Substance: HYDROXYCHLOROQUINE
     Indication: COVID-19
     Dosage: 400 MILLIGRAM, QD
     Route: 065
  11. POTASSIUM CHLORIDE. [Concomitant]
     Active Substance: POTASSIUM CHLORIDE
     Dosage: UNK
     Route: 065
  12. COBICISTAT/DARUNAVIR [Interacting]
     Active Substance: COBICISTAT\DARUNAVIR ETHANOLATE
     Indication: COVID-19
     Dosage: UNK UNK, QD
     Route: 065
  13. ENOXAPARIN [Interacting]
     Active Substance: ENOXAPARIN
     Dosage: UNK
     Route: 065
  14. IRON [Concomitant]
     Active Substance: IRON
     Dosage: UNK
     Route: 065
  15. POTASSIUM CANRENOATE [Concomitant]
     Active Substance: CANRENOATE POTASSIUM
     Dosage: UNK
     Route: 065
  16. VITAMIN B12 [Concomitant]
     Active Substance: CYANOCOBALAMIN
     Dosage: UNK
     Route: 065

REACTIONS (2)
  - Electrocardiogram QT prolonged [Recovering/Resolving]
  - Drug interaction [Unknown]
